FAERS Safety Report 14424620 (Version 2)
Quarter: 2018Q3

REPORT INFORMATION
  Report Type: Spontaneous
  Country: US (occurrence: US)
  Receive Date: 20180123
  Receipt Date: 20180719
  Transmission Date: 20181010
  Serious: No
  Sender: FDA-Public Use
  Company Number: US-OTSUKA-2017_022839

PATIENT
  Age: 20 Year
  Sex: Male

DRUGS (3)
  1. SSRI [Concomitant]
     Active Substance: UNSPECIFIED INGREDIENT
     Indication: PRODUCT USED FOR UNKNOWN INDICATION
     Dosage: UNK
     Route: 065
  2. ABILIFY [Suspect]
     Active Substance: ARIPIPRAZOLE
     Indication: ANXIETY DISORDER
     Dosage: 2 MG, UNK
     Route: 065
     Dates: start: 2017, end: 2017
  3. REXULTI [Suspect]
     Active Substance: BREXPIPRAZOLE
     Indication: ANXIETY DISORDER
     Dosage: 0.5 MG, UNK
     Route: 065
     Dates: start: 2017, end: 2017

REACTIONS (4)
  - Depressive symptom [Unknown]
  - Product use in unapproved indication [Unknown]
  - Akathisia [Recovered/Resolved]
  - Sedation [Unknown]
